FAERS Safety Report 4995811-8 (Version None)
Quarter: 2006Q1

REPORT INFORMATION
  Report Type: 
  Country: None (occurrence: None)
  Receive Date: 20060315
  Receipt Date: 20051215
  Transmission Date: 20060701
  Serious: Yes (Other)
  Sender: FDA-Public Use
  Company Number: 428892

PATIENT
  Age: 78 Year
  Sex: Female

DRUGS (6)
  1. BONIVA [Suspect]
     Indication: OSTEOPOROSIS
     Dosage: 1 PER MONTH ORAL
     Route: 048
     Dates: start: 20051201
  2. SYNTHROID [Concomitant]
  3. BLOOD PRESSURE MEDICATION NOS (ANTIHYPERTENSIVE NOS) [Concomitant]
  4. DIURETIC NOS (DIURETIC NOS) [Concomitant]
  5. 1 CONCOMITANT UNSPECIFIED DRUG (GENERIC UNKNOWN) [Concomitant]
  6. HERBS AND VITAMINS (BOTANICAL NOS/MULTIVITAMIN NOS) [Concomitant]

REACTIONS (3)
  - ARRHYTHMIA [None]
  - HEART RATE IRREGULAR [None]
  - PAIN IN EXTREMITY [None]
